FAERS Safety Report 6323740-6 (Version None)
Quarter: 2009Q3

REPORT INFORMATION
  Report Type: 
  Country: None (occurrence: None)
  Receive Date: 20090824
  Receipt Date: 20090407
  Transmission Date: 20100115
  Serious: No
  Sender: FDA-Public Use
  Company Number: US-ABBOTT-09P-163-0566901-00

PATIENT
  Sex: Male
  Weight: 77.18 kg

DRUGS (5)
  1. NIASPAN [Suspect]
     Indication: BLOOD TRIGLYCERIDES INCREASED
     Dates: start: 20070101, end: 20070101
  2. NIASPAN [Suspect]
     Dates: start: 20070101, end: 20090324
  3. NIASPAN [Suspect]
     Dosage: 500MG IN AM AND 1000MG IN
     Dates: start: 20090324
  4. ASPIRIN [Concomitant]
     Indication: PROPHYLAXIS
     Dates: start: 20070101
  5. VITAMIN TAB [Concomitant]
     Indication: VITAMIN SUPPLEMENTATION
     Dosage: UNKNOWN

REACTIONS (1)
  - FLUSHING [None]
